FAERS Safety Report 10727613 (Version 1)
Quarter: 2015Q1

REPORT INFORMATION
  Report Type: Spontaneous
  Country: US (occurrence: US)
  Receive Date: 20150121
  Receipt Date: 20150121
  Transmission Date: 20150721
  Serious: No
  Sender: FDA-Public Use
  Company Number: US-GLAXOSMITHKLINE-US2014GSK047707

PATIENT
  Age: 78 Year
  Sex: Female

DRUGS (8)
  1. PAXIL [Concomitant]
     Active Substance: PAROXETINE HYDROCHLORIDE
  2. QVAR [Concomitant]
     Active Substance: BECLOMETHASONE DIPROPIONATE
  3. SYNTHROID [Concomitant]
     Active Substance: LEVOTHYROXINE SODIUM
  4. ANORO ELLIPTA [Suspect]
     Active Substance: UMECLIDINIUM BROMIDE\VILANTEROL TRIFENATATE
     Indication: CHRONIC OBSTRUCTIVE PULMONARY DISEASE
     Dosage: 1 PUFF(S), QD
     Route: 055
     Dates: start: 201408
  5. CLONAZEPAM. [Concomitant]
     Active Substance: CLONAZEPAM
  6. LOSARTAN [Concomitant]
     Active Substance: LOSARTAN
  7. METOPROLOL [Concomitant]
     Active Substance: METOPROLOL
  8. ALBUTEROL INHALATIONAL POWDER [Concomitant]
     Active Substance: ALBUTEROL

REACTIONS (1)
  - Rhinorrhoea [Not Recovered/Not Resolved]

NARRATIVE: CASE EVENT DATE: 201409
